FAERS Safety Report 4866695-3 (Version None)
Quarter: 2005Q4

REPORT INFORMATION
  Report Type: 
  Country: None (occurrence: None)
  Receive Date: 20051221
  Receipt Date: 20051208
  Transmission Date: 20060501
  Serious: Yes (Hospitalization)
  Sender: FDA-Public Use
  Company Number: 2005P1000618

PATIENT
  Sex: Male
  Weight: 70 kg

DRUGS (8)
  1. RETEPLASE (RETEPLASE) [Suspect]
     Indication: ACUTE MYOCARDIAL INFARCTION
     Dosage: IV
     Route: 042
     Dates: start: 20051108, end: 20051108
  2. ABCIXIMAB (ABCIXIMAB) [Suspect]
     Indication: ACUTE MYOCARDIAL INFARCTION
     Dosage: IV
     Route: 042
     Dates: start: 20051108, end: 20051108
  3. ASPIRIN [Concomitant]
  4. CLOPIDOGREL [Concomitant]
  5. ATORVASTATIN [Concomitant]
  6. BISOPROLOL [Concomitant]
  7. RAMIPRIL [Concomitant]
  8. LANSOPRAZOLE [Concomitant]

REACTIONS (2)
  - ANGINA UNSTABLE [None]
  - VENTRICULAR DYSFUNCTION [None]
